FAERS Safety Report 4310233-0 (Version None)
Quarter: 2004Q1

REPORT INFORMATION
  Report Type: 
  Country: None (occurrence: None)
  Receive Date: 20040301
  Receipt Date: 20031231
  Transmission Date: 20041129
  Serious: No
  Sender: FDA-Public Use
  Company Number: WAES 0401USA00007

PATIENT
  Sex: Female

DRUGS (6)
  1. ZETIA [Suspect]
     Indication: HYPERCHOLESTEROLAEMIA
     Dosage: 10 MG/DAILY/PO
     Route: 048
  2. COUMADIN [Concomitant]
  3. LEVOXYL [Concomitant]
  4. PRINIVIL [Concomitant]
  5. ZOCOR [Concomitant]
  6. INSULIN [Concomitant]

REACTIONS (1)
  - SKIN ODOUR ABNORMAL [None]
